FAERS Safety Report 7802495-X (Version None)
Quarter: 2011Q4

REPORT INFORMATION
  Report Type: 
  Country: None (occurrence: None)
  Receive Date: 20111007
  Receipt Date: 20110930
  Transmission Date: 20120403
  Serious: Yes (Other)
  Sender: FDA-Public Use
  Company Number: FR-GLAXOSMITHKLINE-B0752238A

PATIENT
  Sex: Male

DRUGS (5)
  1. TRIVASTAL [Concomitant]
     Indication: PARKINSON'S DISEASE
     Route: 065
  2. COMTAN [Concomitant]
     Dosage: 1TAB FOUR TIMES PER DAY
     Route: 048
     Dates: end: 20071101
  3. REQUIP [Suspect]
     Indication: PARKINSON'S DISEASE
     Dosage: 2MG FOUR TIMES PER DAY
     Route: 048
     Dates: start: 19980101, end: 20071101
  4. SINEMET [Concomitant]
     Route: 048
  5. NEURONTIN [Concomitant]
     Dosage: 200MG FOUR TIMES PER DAY
     Route: 048

REACTIONS (4)
  - GAMBLING [None]
  - OBSESSIVE-COMPULSIVE DISORDER [None]
  - SOMNOLENCE [None]
  - SUDDEN ONSET OF SLEEP [None]
